FAERS Safety Report 7044781-X (Version None)
Quarter: 2010Q4

REPORT INFORMATION
  Report Type: 
  Country: None (occurrence: None)
  Receive Date: 20101014
  Receipt Date: 20100930
  Transmission Date: 20110411
  Serious: Yes (Hospitalization)
  Sender: FDA-Public Use
  Company Number: PHHY2010DE66195

PATIENT
  Sex: Male

DRUGS (8)
  1. RASILEZ HCT [Suspect]
  2. LOCOL [Suspect]
  3. AMLODIPINE [Concomitant]
     Dosage: 10 MG.
  4. LANTUS [Concomitant]
  5. GLIMEPIRIDE [Concomitant]
  6. PANTOPRAZOLE [Concomitant]
  7. ASS ^CT-ARZNEIMITTEL^ [Concomitant]
     Dosage: 100
  8. MOXONIDINE [Concomitant]

REACTIONS (3)
  - BLOOD POTASSIUM INCREASED [None]
  - BRADYCARDIA [None]
  - CIRCULATORY COLLAPSE [None]
